FAERS Safety Report 25866625 (Version 1)
Quarter: 2025Q3

REPORT INFORMATION
  Report Type: Spontaneous
  Country: US (occurrence: US)
  Receive Date: 20250930
  Receipt Date: 20250930
  Transmission Date: 20251020
  Serious: No
  Sender: BLUEPRINT MEDICINES
  Company Number: US-Blueprint Medicines Corporation-2025-AER-02115

PATIENT
  Age: 77 Year
  Sex: Male

DRUGS (2)
  1. AYVAKIT [Suspect]
     Active Substance: AVAPRITINIB
     Indication: Gastric cancer
     Route: 048
     Dates: start: 20250121
  2. AYVAKIT [Suspect]
     Active Substance: AVAPRITINIB
     Indication: Metastases to liver

REACTIONS (1)
  - Fatigue [Unknown]
